FAERS Safety Report 6697818-1 (Version None)
Quarter: 2010Q2

REPORT INFORMATION
  Report Type: 
  Country: None (occurrence: None)
  Receive Date: 20100423
  Receipt Date: 20100412
  Transmission Date: 20101027
  Serious: Yes (Other)
  Sender: FDA-Public Use
  Company Number: SE-1181513

PATIENT
  Sex: Female

DRUGS (1)
  1. AZOPT [Suspect]
     Dosage: OPHTHALMIC
     Route: 047

REACTIONS (2)
  - CARDIAC FIBRILLATION [None]
  - CONDITION AGGRAVATED [None]
